FAERS Safety Report 8608512-1 (Version None)
Quarter: 2012Q3

REPORT INFORMATION
  Report Type: 
  Country: None (occurrence: None)
  Receive Date: 20120821
  Receipt Date: 20101014
  Transmission Date: 20120928
  Serious: Yes (Other)
  Sender: FDA-Public Use
  Company Number: CO-PFIZER INC-2012202143

PATIENT
  Age: 67 Year
  Sex: Female

DRUGS (4)
  1. ASPIRIN [Concomitant]
     Dosage: 100 MG EVERY 24 HOURS
  2. METFORMIN [Concomitant]
     Dosage: 850 MG EVERY 8 HOURS
  3. GLIBENCLAMIDE [Concomitant]
     Dosage: 5 MG EVERY 12 HOURS
  4. LIPITOR [Suspect]
     Indication: DYSLIPIDAEMIA
     Dosage: 10 MG EVERY 24 HOURS

REACTIONS (3)
  - RENAL FAILURE CHRONIC [None]
  - HEART RATE DECREASED [None]
  - LEUKOCYTURIA [None]
